FAERS Safety Report 9000580 (Version 1)
Quarter: 2013Q1

REPORT INFORMATION
  Report Type: Spontaneous
  Country: US (occurrence: US)
  Receive Date: 20130107
  Receipt Date: 20130107
  Transmission Date: 20140127
  Serious: No
  Sender: FDA-Public Use
  Company Number: US-PFIZER INC-2013004002

PATIENT
  Sex: Female
  Weight: 80.27 kg

DRUGS (2)
  1. XELJANZ [Suspect]
     Indication: RHEUMATOID ARTHRITIS
     Dosage: 5 MG, 2X/DAY
     Route: 048
     Dates: start: 20121115, end: 20121228
  2. XELJANZ [Suspect]
     Dosage: 5 MG, ONCE
     Route: 048
     Dates: start: 20130102, end: 20130102

REACTIONS (2)
  - Headache [Unknown]
  - Pyrexia [Unknown]
